FAERS Safety Report 9608098 (Version 2)
Quarter: 2013Q4

REPORT INFORMATION
  Report Type: Spontaneous
  Country: US (occurrence: US)
  Receive Date: 20131009
  Receipt Date: 20131031
  Transmission Date: 20140711
  Serious: No
  Sender: FDA-Public Use
  Company Number: US-PFIZER INC-2013288431

PATIENT
  Sex: Female

DRUGS (4)
  1. LYRICA [Suspect]
     Indication: FIBROMYALGIA
     Dosage: 50 MG, UNK
     Dates: start: 2013, end: 2013
  2. LYRICA [Suspect]
     Dosage: 75 MG, 2X/DAY
     Dates: start: 2013, end: 2013
  3. LYRICA [Suspect]
     Dosage: 100 MG, 2X/DAY
     Dates: start: 2013
  4. LYRICA [Suspect]
     Dosage: UNK

REACTIONS (1)
  - Drug ineffective [Unknown]
